FAERS Safety Report 24559430 (Version 1)
Quarter: 2024Q4

REPORT INFORMATION
  Report Type: Spontaneous
  Country: PL (occurrence: PL)
  Receive Date: 20241029
  Receipt Date: 20241029
  Transmission Date: 20250114
  Serious: Yes (Life-Threatening, Hospitalization, Other)
  Sender: AUROBINDO
  Company Number: PL-URPL-1-2544-2020

PATIENT
  Age: 37 Year
  Sex: Female

DRUGS (3)
  1. AMLODIPINE [Suspect]
     Active Substance: AMLODIPINE BESYLATE
     Indication: Toxicity to various agents
     Dosage: 6 DOSAGE FORM 1TOTAL
     Route: 048
     Dates: start: 20201017, end: 20201017
  2. NEBIVOLOL [Suspect]
     Active Substance: NEBIVOLOL
     Indication: Toxicity to various agents
     Dosage: 30 DOSAGE FORM 1TOTAL
     Route: 048
     Dates: start: 20201017, end: 20201017
  3. SERTRALINE [Suspect]
     Active Substance: SERTRALINE HYDROCHLORIDE
     Indication: Toxicity to various agents
     Dosage: 8 DOSAGE FORM 1TOTAL (8 TABLETS OF 10 MG)
     Route: 048
     Dates: start: 20201017, end: 20201017

REACTIONS (4)
  - Altered state of consciousness [Unknown]
  - Hypotonia [Unknown]
  - Intentional overdose [Unknown]
  - Poisoning deliberate [Unknown]

NARRATIVE: CASE EVENT DATE: 20201017
